FAERS Safety Report 9170830 (Version 1)
Quarter: 2013Q1

REPORT INFORMATION
  Report Type: Spontaneous
  Country: PT (occurrence: None)
  Receive Date: 20130312
  Receipt Date: 20130312
  Transmission Date: 20140127
  Serious: Yes (Other)
  Sender: FDA-Public Use
  Company Number: 2013P1002865

PATIENT
  Age: 87 Year
  Sex: Male

DRUGS (6)
  1. LEVOFLOXACIN [Suspect]
     Indication: RESPIRATORY TRACT INFECTION
     Dosage: 15 DAYS
  2. MIXED INSULIN (CON.) [Concomitant]
  3. BACLOMETHASONE INHALANT (CON.) [Concomitant]
  4. AMINOPHYLLINE (CON.) [Concomitant]
  5. DESLORATADINE (CON.) [Concomitant]
  6. FUROSEMIDE (CON.) [Concomitant]

REACTIONS (4)
  - Hepatomegaly [None]
  - Hepatic steatosis [None]
  - Cholestasis [None]
  - Hepatotoxicity [None]
